FAERS Safety Report 13151129 (Version 1)
Quarter: 2017Q1

REPORT INFORMATION
  Report Type: Spontaneous
  Country: US (occurrence: US)
  Receive Date: 20170125
  Receipt Date: 20170125
  Transmission Date: 20170428
  Serious: Yes (Hospitalization, Other)
  Sender: FDA-Public Use
  Company Number: None

PATIENT
  Age: 63 Year
  Sex: Female
  Weight: 68.1 kg

DRUGS (1)
  1. LEVAQUIN [Suspect]
     Active Substance: LEVOFLOXACIN
     Indication: GASTRIC INFECTION
     Dosage: 06-08-2008-09-2008
     Dates: start: 20080608, end: 200809

REACTIONS (8)
  - Nerve injury [None]
  - Musculoskeletal disorder [None]
  - Thrombosis [None]
  - Swelling [None]
  - Pain [None]
  - Paraesthesia [None]
  - Pain in extremity [None]
  - Cardiovascular disorder [None]

NARRATIVE: CASE EVENT DATE: 20120805
